FAERS Safety Report 4269624-9 (Version None)
Quarter: 2004Q1

REPORT INFORMATION
  Report Type: 
  Country: None (occurrence: None)
  Receive Date: 20040112
  Receipt Date: 20040106
  Transmission Date: 20041129
  Serious: Yes (Hospitalization)
  Sender: FDA-Public Use
  Company Number: FR-JNJFOC-20031105095

PATIENT
  Age: 21 Year
  Sex: Female
  Weight: 50 kg

DRUGS (8)
  1. ERGAMISOLE (LEVAMISOLE HYDROCHLORIDE) UNSPECIFIED [Suspect]
     Indication: NEPHROTIC SYNDROME
     Dosage: 150 MG, 3 IN 7 DAY, ORAL
     Route: 048
     Dates: start: 20030601, end: 20031027
  2. PREDNISONE [Concomitant]
  3. LASIX [Concomitant]
  4. FRAXIPARINE (HEPARIN-FRACTION, CALCIUM SALT) [Concomitant]
  5. RAMIPRIL [Concomitant]
  6. CALCIDIA (CALCIUM CARBONATE) [Concomitant]
  7. OMEPRAZOLE [Concomitant]
  8. FERROUS SULFATE TAB [Concomitant]

REACTIONS (3)
  - ACTIVATED PARTIAL THROMBOPLASTIN TIME PROLONGED [None]
  - COAGULATION TIME PROLONGED [None]
  - OVARIAN CYST RUPTURED [None]
